FAERS Safety Report 6692968-8 (Version None)
Quarter: 2010Q2

REPORT INFORMATION
  Report Type: 
  Country: None (occurrence: None)
  Receive Date: 20100422
  Receipt Date: 20100413
  Transmission Date: 20101027
  Serious: Yes (Hospitalization)
  Sender: FDA-Public Use
  Company Number: FR-B.I. PHARMACEUTICALS,INC./RIDGEFIELD-2010-BP-04545YA

PATIENT
  Sex: Male

DRUGS (4)
  1. TAMSULOSIN HCL [Suspect]
     Indication: DYSURIA
     Dosage: 0.4 MG
     Route: 048
     Dates: start: 20100323
  2. ULTRAVIST 300 [Suspect]
     Indication: DRUG USE FOR UNKNOWN INDICATION
     Route: 042
     Dates: start: 20100331, end: 20100331
  3. LYRICA [Suspect]
     Indication: NEURALGIA
     Dosage: 0.4 MG
     Route: 048
     Dates: start: 20100323
  4. OXYBUTYNINE (OXYBUTYNIN HYDROCHLORIDE) [Suspect]
     Indication: DYSURIA
     Dosage: 5 MG
     Route: 048
     Dates: start: 20100323

REACTIONS (3)
  - CHEST DISCOMFORT [None]
  - DYSPHAGIA [None]
  - LOCALISED OEDEMA [None]
